FAERS Safety Report 21253283 (Version 1)
Quarter: 2022Q3

REPORT INFORMATION
  Report Type: Spontaneous
  Country: US (occurrence: None)
  Receive Date: 20220824
  Receipt Date: 20220824
  Transmission Date: 20221027
  Serious: No
  Sender: FDA-Public Use
  Company Number: None

PATIENT
  Age: 55 Year
  Sex: Female
  Weight: 52.65 kg

DRUGS (18)
  1. EVUSHELD [Suspect]
     Active Substance: CILGAVIMAB\TIXAGEVIMAB
     Indication: COVID-19 prophylaxis
     Dosage: OTHER FREQUENCY : 1X EVERY 6 MONTHS;?
     Route: 030
     Dates: start: 20220718, end: 20220718
  2. METHOTREXATE [Concomitant]
     Active Substance: METHOTREXATE
  3. GLATOPA [Concomitant]
     Active Substance: GLATIRAMER ACETATE
  4. BOTOX [Concomitant]
     Active Substance: ONABOTULINUMTOXINA
  5. GABAPENTIN [Concomitant]
     Active Substance: GABAPENTIN
  6. LUNESTA [Concomitant]
     Active Substance: ESZOPICLONE
  7. VITAMIN D3 [Concomitant]
     Active Substance: CHOLECALCIFEROL
  8. MELATONIN [Concomitant]
     Active Substance: MELATONIN
  9. VITAMIN B12 [Concomitant]
     Active Substance: CYANOCOBALAMIN
  10. FOLIC ACID [Concomitant]
     Active Substance: FOLIC ACID
  11. MAGNESIUM [Concomitant]
     Active Substance: MAGNESIUM
  12. PROBIOTICS NOS [Concomitant]
     Active Substance: PROBIOTICS NOS
  13. HERBALS\TURMERIC [Concomitant]
     Active Substance: HERBALS\TURMERIC
  14. BIOTIN [Concomitant]
     Active Substance: BIOTIN
  15. COD LIVER OIL [Concomitant]
     Active Substance: COD LIVER OIL
  16. PEPCID [Concomitant]
     Active Substance: FAMOTIDINE
  17. OMEPRAZOLE [Concomitant]
     Active Substance: OMEPRAZOLE
  18. CRANBERRY [Concomitant]
     Active Substance: CRANBERRY

REACTIONS (12)
  - Headache [None]
  - Musculoskeletal stiffness [None]
  - Musculoskeletal stiffness [None]
  - Nausea [None]
  - Dizziness [None]
  - Fatigue [None]
  - Palpitations [None]
  - Pain [None]
  - Chest pain [None]
  - Neuralgia [None]
  - Paraesthesia [None]
  - Condition aggravated [None]

NARRATIVE: CASE EVENT DATE: 20220718
